FAERS Safety Report 7048463-X (Version None)
Quarter: 2010Q4

REPORT INFORMATION
  Report Type: 
  Country: None (occurrence: None)
  Receive Date: 20101015
  Receipt Date: 20101015
  Transmission Date: 20110411
  Serious: Yes (Hospitalization)
  Sender: FDA-Public Use
  Company Number: None

PATIENT
  Age: 66 Year
  Sex: Male
  Weight: 62 kg

DRUGS (2)
  1. PIPERACILLIN AND TAZOBACTAM [Suspect]
     Indication: DIABETIC FOOT
     Dosage: 3.375 GM QID IV
     Route: 042
     Dates: start: 20100930, end: 20101010
  2. PIPERACILLIN AND TAZOBACTAM [Suspect]
     Indication: NECROSIS
     Dosage: 3.375 GM QID IV
     Route: 042
     Dates: start: 20100930, end: 20101010

REACTIONS (3)
  - DERMATITIS BULLOUS [None]
  - SKIN EXFOLIATION [None]
  - STEVENS-JOHNSON SYNDROME [None]
